FAERS Safety Report 5035298-2 (Version None)
Quarter: 2006Q2

REPORT INFORMATION
  Report Type: 
  Country: None (occurrence: None)
  Receive Date: 20060523
  Receipt Date: 20050510
  Transmission Date: 20061013
  Serious: No
  Sender: FDA-Public Use
  Company Number: 20050400117

PATIENT
  Age: 59 Year
  Sex: Male

DRUGS (5)
  1. HEPARIN SODIUM [Suspect]
     Indication: ILL-DEFINED DISORDER
     Dates: start: 20050407
  2. INTEGRILIN [Suspect]
     Indication: ILL-DEFINED DISORDER
     Dates: start: 20050407, end: 20050408
  3. ASPIRIN [Suspect]
     Indication: ILL-DEFINED DISORDER
     Dates: start: 20050407
  4. TRICOR [Concomitant]
  5. LOPRESSOR [Concomitant]

REACTIONS (1)
  - THROMBOCYTOPENIA [None]
